FAERS Safety Report 5378695-8 (Version None)
Quarter: 2007Q3

REPORT INFORMATION
  Report Type: 
  Country: None (occurrence: None)
  Receive Date: 20070705
  Receipt Date: 20070628
  Transmission Date: 20080115
  Serious: Yes (Other)
  Sender: FDA-Public Use
  Company Number: A0653045A

PATIENT
  Sex: Female

DRUGS (21)
  1. AVANDIA [Suspect]
     Dosage: 4MG TWICE PER DAY
     Route: 048
     Dates: start: 20020101
  2. ENBREL [Concomitant]
  3. LANTUS [Concomitant]
  4. AMARYL [Concomitant]
  5. MICRO-K [Concomitant]
  6. CARDURA [Concomitant]
  7. CARDIZEM CD [Concomitant]
  8. FUROSEMIDE [Concomitant]
  9. ZETIA [Concomitant]
  10. LIPITOR [Concomitant]
  11. COUMADIN [Concomitant]
  12. REGLAN [Concomitant]
  13. ZONEGRAN [Concomitant]
  14. BACLOFEN [Concomitant]
  15. LORTAB [Concomitant]
  16. FOSAMAX [Concomitant]
  17. TETRACYCLINE [Concomitant]
  18. OSCAL [Concomitant]
  19. VITAMIN E [Concomitant]
  20. OSTEO BIFLEX [Concomitant]
  21. UNKNOWN SUPPLEMENT [Concomitant]

REACTIONS (3)
  - FLUID RETENTION [None]
  - OEDEMA PERIPHERAL [None]
  - SWELLING [None]
